FAERS Safety Report 5663626-3 (Version None)
Quarter: 2008Q1

REPORT INFORMATION
  Report Type: 
  Country: None (occurrence: None)
  Receive Date: 20080307
  Receipt Date: 20080304
  Transmission Date: 20080703
  Serious: Yes (Death, Other)
  Sender: FDA-Public Use
  Company Number: 2007SP012881

PATIENT
  Age: 6 Year
  Sex: Female
  Weight: 20 kg

DRUGS (5)
  1. TEMODAL [Suspect]
     Indication: GLIOMA
     Dosage: 20 MG;QD;PO
     Route: 048
     Dates: start: 20070320, end: 20070625
  2. DEXAMETHASONE TAB [Concomitant]
  3. ONDANSETRON [Concomitant]
  4. RANITIDINE [Concomitant]
  5. SEPTRA [Concomitant]

REACTIONS (9)
  - ANOREXIA [None]
  - COMPUTERISED TOMOGRAM ABNORMAL [None]
  - DISEASE PROGRESSION [None]
  - DROOLING [None]
  - FACIAL PARESIS [None]
  - HEADACHE [None]
  - HYPERSOMNIA [None]
  - HYPOAESTHESIA [None]
  - PARAESTHESIA [None]
